FAERS Safety Report 8762530 (Version 1)
Quarter: 2012Q4

REPORT INFORMATION
  Report Type: 
  Country: US (occurrence: US)
  Receive Date: 20120829
  Receipt Date: 20120829
  Transmission Date: 20130627
  Serious: No
  Sender: FDA-Public Use
  Company Number: US-PFIZER INC-2012208747

PATIENT
  Age: 61 Year
  Sex: Female
  Weight: 95.24 kg

DRUGS (8)
  1. NEURONTIN [Suspect]
     Indication: PAIN
     Dosage: UNK, 3x/day
  2. CYMBALTA [Concomitant]
     Dosage: UNK
     Route: 048
  3. DESIPRAMINE [Concomitant]
     Dosage: UNK
     Route: 048
  4. ATENOLOL [Concomitant]
     Indication: HYPERTENSION
     Dosage: UNK
     Route: 048
  5. ATARAX [Concomitant]
     Indication: ECZEMA
     Dosage: UNK
  6. LUNESTA [Concomitant]
     Indication: SLEEP DISORDER
     Dosage: UNK
  7. LYRICA [Concomitant]
     Indication: FIBROMYALGIA
     Dosage: 75 mg, 4x/day
     Route: 048
     Dates: start: 2008
  8. LYRICA [Concomitant]
     Indication: PAIN

REACTIONS (1)
  - Drug ineffective [Unknown]
